FAERS Safety Report 23082878 (Version 2)
Quarter: 2024Q1

REPORT INFORMATION
  Report Type: Spontaneous
  Country: FR (occurrence: None)
  Receive Date: 20231019
  Receipt Date: 20240103
  Transmission Date: 20240409
  Serious: Yes (Death)
  Sender: FDA-Public Use
  Company Number: FR-INCYTE CORPORATION-2023IN007910

PATIENT
  Sex: Female
  Weight: 75 kg

DRUGS (8)
  1. RITUXIMAB [Suspect]
     Active Substance: RITUXIMAB
     Indication: Product used for unknown indication
     Dosage: 1 COURSE
     Route: 042
     Dates: start: 20221207
  2. RITUXIMAB [Suspect]
     Active Substance: RITUXIMAB
     Dosage: 1 COURSE
     Route: 042
     Dates: start: 20221212
  3. OXALIPLATIN [Suspect]
     Active Substance: OXALIPLATIN
     Indication: Product used for unknown indication
     Dosage: 1 COURSE
     Route: 065
     Dates: start: 20221207
  4. OXALIPLATIN [Suspect]
     Active Substance: OXALIPLATIN
     Dosage: 1 COURSE
     Route: 065
     Dates: start: 20221212
  5. GEMCITABINE [Suspect]
     Active Substance: GEMCITABINE
     Indication: Product used for unknown indication
     Dosage: 1 COURSE
     Route: 065
     Dates: start: 20221207
  6. GEMCITABINE [Suspect]
     Active Substance: GEMCITABINE
     Dosage: 1 COURSE
     Route: 065
     Dates: start: 20221212
  7. MONJUVI [Suspect]
     Active Substance: TAFASITAMAB-CXIX
     Indication: Diffuse large B-cell lymphoma
     Route: 065
     Dates: start: 20221212
  8. MONJUVI [Suspect]
     Active Substance: TAFASITAMAB-CXIX
     Dosage: D1 D4 D8 D15 D22
     Route: 065
     Dates: start: 20221115, end: 20221129

REACTIONS (4)
  - General physical health deterioration [Fatal]
  - Disease progression [Fatal]
  - Diffuse large B-cell lymphoma [Fatal]
  - Drug ineffective [Unknown]
